FAERS Safety Report 9097447 (Version 1)
Quarter: 2013Q1

REPORT INFORMATION
  Report Type: Spontaneous
  Country: US (occurrence: US)
  Receive Date: 20130212
  Receipt Date: 20130212
  Transmission Date: 20140127
  Serious: Yes (Other)
  Sender: FDA-Public Use
  Company Number: US-ELI_LILLY_AND_COMPANY-US201302001005

PATIENT
  Age: 66 Year
  Sex: Male

DRUGS (2)
  1. HUMALOG LISPRO [Suspect]
     Indication: DIABETES MELLITUS
     Dosage: UNK, PRN
     Dates: start: 2010
  2. LANTUS [Concomitant]
     Dosage: 20 U, EACH EVENING

REACTIONS (1)
  - Renal failure chronic [Not Recovered/Not Resolved]
